FAERS Safety Report 13850785 (Version 1)
Quarter: 2017Q3

REPORT INFORMATION
  Report Type: Spontaneous
  Country: US (occurrence: US)
  Receive Date: 20170810
  Receipt Date: 20170810
  Transmission Date: 20171127
  Serious: No
  Sender: FDA-Public Use
  Company Number: US-BIOGEN-2017BI00443585

PATIENT
  Sex: Female

DRUGS (1)
  1. TECFIDERA [Suspect]
     Active Substance: DIMETHYL FUMARATE
     Indication: MULTIPLE SCLEROSIS
     Route: 065
     Dates: start: 20170805

REACTIONS (6)
  - Flushing [Unknown]
  - Muscle spasms [Unknown]
  - Diarrhoea [Unknown]
  - Swelling face [Unknown]
  - Nausea [Unknown]
  - Abdominal discomfort [Unknown]
